FAERS Safety Report 4397653-3 (Version None)
Quarter: 2004Q3

REPORT INFORMATION
  Report Type: 
  Country: None (occurrence: None)
  Receive Date: 20040713
  Receipt Date: 20040630
  Transmission Date: 20050211
  Serious: Yes (Hospitalization)
  Sender: FDA-Public Use
  Company Number: 139345USA

PATIENT
  Age: 12 Year
  Sex: Female

DRUGS (6)
  1. PIMOZIDE [Suspect]
     Indication: TOURETTE'S DISORDER
     Dosage: 2 MILLIGRAM, ORAL
     Route: 048
     Dates: start: 20030530, end: 20030703
  2. RISPERIDONE [Suspect]
     Indication: TOURETTE'S DISORDER
     Dosage: 4 MILLIGRAM/3 MILLIGRAM/2 MILLIGRAM ORAL
     Route: 048
     Dates: start: 20030704, end: 20040201
  3. RISPERIDONE [Suspect]
     Indication: TOURETTE'S DISORDER
     Dosage: 4 MILLIGRAM/3 MILLIGRAM/2 MILLIGRAM ORAL
     Route: 048
     Dates: start: 20040201, end: 20040609
  4. RISPERIDONE [Suspect]
     Indication: TOURETTE'S DISORDER
     Dosage: 4 MILLIGRAM/3 MILLIGRAM/2 MILLIGRAM ORAL
     Route: 048
     Dates: start: 20040610
  5. SERETIDE [Concomitant]
  6. ALBUTEROL SULFATE [Concomitant]

REACTIONS (12)
  - ABDOMINAL PAIN [None]
  - ANOREXIA [None]
  - ASTHENIA [None]
  - BIOPSY SITE UNSPECIFIED ABNORMAL [None]
  - COLONOSCOPY ABNORMAL [None]
  - DIARRHOEA [None]
  - ENTEROCOLITIS HAEMORRHAGIC [None]
  - ERYTHEMA [None]
  - HELICOBACTER GASTRITIS [None]
  - RECTAL HAEMORRHAGE [None]
  - RECTAL TENESMUS [None]
  - WEIGHT INCREASED [None]
